FAERS Safety Report 12570948 (Version 1)
Quarter: 2016Q3

REPORT INFORMATION
  Report Type: Spontaneous
  Country: US (occurrence: US)
  Receive Date: 20160719
  Receipt Date: 20160719
  Transmission Date: 20161109
  Serious: Yes (Hospitalization)
  Sender: FDA-Public Use
  Company Number: US-NORTHSTAR HEALTHCARE HOLDINGS-US-2016NSR001817

PATIENT
  Age: 68 Year
  Sex: Female

DRUGS (3)
  1. BACLOFEN. [Suspect]
     Active Substance: BACLOFEN
     Dosage: 30 MG, QID
     Route: 048
  2. BACLOFEN. [Suspect]
     Active Substance: BACLOFEN
     Indication: PRODUCT USED FOR UNKNOWN INDICATION
     Dosage: 120 MG/DAY
     Route: 048
  3. BACLOFEN. [Suspect]
     Active Substance: BACLOFEN
     Dosage: 10 MG, TID
     Route: 048

REACTIONS (10)
  - Hallucinations, mixed [Recovered/Resolved]
  - Speech disorder [Recovered/Resolved]
  - Muscle spasticity [Recovered/Resolved]
  - Mental status changes [Recovered/Resolved]
  - Athetosis [Recovered/Resolved]
  - Pressure of speech [Recovered/Resolved]
  - Withdrawal syndrome [Recovered/Resolved]
  - Insomnia [Recovered/Resolved]
  - Disorientation [Recovered/Resolved]
  - Encephalopathy [Recovered/Resolved]
